FAERS Safety Report 4354087-5 (Version None)
Quarter: 2004Q2

REPORT INFORMATION
  Report Type: 
  Country: None (occurrence: None)
  Receive Date: 20040506
  Receipt Date: 20040318
  Transmission Date: 20050107
  Serious: Yes (Hospitalization)
  Sender: FDA-Public Use
  Company Number: US-BRISTOL-MYERS SQUIBB COMPANY-12536199

PATIENT
  Age: 26 Year
  Sex: Male
  Weight: 100 kg

DRUGS (5)
  1. ARIPIPRAZOLE [Suspect]
     Indication: BIPOLAR DISORDER
     Route: 048
     Dates: start: 20040216, end: 20040302
  2. DIVALPROEX SODIUM [Concomitant]
     Dates: start: 20040216
  3. TEMAZEPAM [Concomitant]
     Dates: start: 20040216
  4. LORAZEPAM [Concomitant]
     Dates: start: 20040216
  5. PANTOPRAZOLE [Concomitant]
     Dates: start: 20040216

REACTIONS (15)
  - ANXIETY [None]
  - BLOOD CREATINE PHOSPHOKINASE INCREASED [None]
  - CATATONIA [None]
  - DEPRESSED MOOD [None]
  - DYSPHAGIA [None]
  - FALL [None]
  - HEADACHE [None]
  - HYPERTENSION [None]
  - HYPERTONIA [None]
  - HYPOKINESIA [None]
  - LEUKOCYTOSIS [None]
  - NECK PAIN [None]
  - PYREXIA [None]
  - SUICIDAL IDEATION [None]
  - URINARY INCONTINENCE [None]
